FAERS Safety Report 13895648 (Version 1)
Quarter: 2017Q3

REPORT INFORMATION
  Report Type: Spontaneous
  Country: US (occurrence: US)
  Receive Date: 20170820
  Receipt Date: 20170820
  Transmission Date: 20171127
  Serious: Yes (Hospitalization)
  Sender: FDA-Public Use
  Company Number: None

PATIENT
  Age: 55 Year
  Sex: Male
  Weight: 75 kg

DRUGS (9)
  1. INSULIN GLARGINE [Concomitant]
     Active Substance: INSULIN GLARGINE
  2. DAPTOMYCIN. [Suspect]
     Active Substance: DAPTOMYCIN
     Indication: OSTEOMYELITIS
     Route: 042
     Dates: start: 20170630, end: 20170726
  3. LISINOPRIL. [Concomitant]
     Active Substance: LISINOPRIL
  4. ENOXAPARIN [Concomitant]
     Active Substance: ENOXAPARIN
  5. CEFTAROLINE [Concomitant]
     Active Substance: CEFTAROLINE
  6. DAPTOMYCIN. [Suspect]
     Active Substance: DAPTOMYCIN
     Indication: PERIORBITAL ABSCESS
     Route: 042
     Dates: start: 20170630, end: 20170726
  7. DAPTOMYCIN. [Suspect]
     Active Substance: DAPTOMYCIN
     Indication: STAPHYLOCOCCAL BACTERAEMIA
     Route: 042
     Dates: start: 20170630, end: 20170726
  8. FUROSEMIDE. [Concomitant]
     Active Substance: FUROSEMIDE
  9. INSULIN LISPRO [Concomitant]
     Active Substance: INSULIN LISPRO

REACTIONS (4)
  - Pleural effusion [None]
  - Dyspnoea [None]
  - Hypoxia [None]
  - Eosinophilic pneumonia [None]

NARRATIVE: CASE EVENT DATE: 20170724
